FAERS Safety Report 24636897 (Version 1)
Quarter: 2024Q4

REPORT INFORMATION
  Report Type: Other
  Country: US (occurrence: US)
  Receive Date: 20241119
  Receipt Date: 20241119
  Transmission Date: 20250115
  Serious: Yes (Hospitalization, Other)
  Sender: COREPHARMA LLC
  Company Number: US-CorePharma LLC-2165372

PATIENT
  Age: 7 Decade
  Sex: Female

DRUGS (10)
  1. TORSEMIDE [Suspect]
     Active Substance: TORSEMIDE
     Indication: Chronic left ventricular failure
  2. SPIRONOLACTONE [Suspect]
     Active Substance: SPIRONOLACTONE
  3. DOXORUBICIN HYDROCHLORIDE [Concomitant]
     Active Substance: DOXORUBICIN HYDROCHLORIDE
  4. APIXABAN [Concomitant]
     Active Substance: APIXABAN
  5. MILRINONE LACTATE [Concomitant]
     Active Substance: MILRINONE LACTATE
  6. ATORVASTATIN CALCIUM [Concomitant]
     Active Substance: ATORVASTATIN CALCIUM
  7. ASPIRIN [Concomitant]
     Active Substance: ASPIRIN
  8. AMIODARONE HYDROCHLORIDE [Concomitant]
     Active Substance: AMIODARONE HYDROCHLORIDE
  9. METOPROLOL SUCCINATE [Concomitant]
     Active Substance: METOPROLOL SUCCINATE
  10. Docetaxel/Gemcitabine [Concomitant]

REACTIONS (2)
  - Cardiac failure acute [Recovering/Resolving]
  - Rebound effect [Recovering/Resolving]
